FAERS Safety Report 21178750 (Version 1)
Quarter: 2022Q3

REPORT INFORMATION
  Report Type: Spontaneous
  Country: CN (occurrence: CN)
  Receive Date: 20220805
  Receipt Date: 20220805
  Transmission Date: 20221027
  Serious: Yes (Hospitalization, Other)
  Sender: FDA-Public Use
  Company Number: CN-PFIZER INC-PV202200022397

PATIENT
  Age: 87 Year
  Sex: Male
  Weight: 54 kg

DRUGS (7)
  1. LINEZOLID [Suspect]
     Active Substance: LINEZOLID
     Indication: Lung abscess
     Dosage: 600 MG, 2X/DAY(Q12H)
     Route: 041
     Dates: start: 20220701, end: 20220705
  2. LINEZOLID [Suspect]
     Active Substance: LINEZOLID
     Indication: Anti-infective therapy
  3. LINEZOLID [Suspect]
     Active Substance: LINEZOLID
     Indication: Lung abscess
     Dosage: 600 MG, 2X/DAY (Q12H)
     Route: 048
     Dates: start: 20220626, end: 20220701
  4. LINEZOLID [Suspect]
     Active Substance: LINEZOLID
     Indication: Anti-infective therapy
  5. PIPERACILLIN SODIUM\TAZOBACTAM SODIUM [Concomitant]
     Active Substance: PIPERACILLIN SODIUM\TAZOBACTAM SODIUM
     Indication: Lung abscess
     Dosage: 4.5 G, 3X/DAY (Q8H)
     Route: 041
     Dates: start: 20220623, end: 20220712
  6. PIPERACILLIN SODIUM\TAZOBACTAM SODIUM [Concomitant]
     Active Substance: PIPERACILLIN SODIUM\TAZOBACTAM SODIUM
     Indication: Anti-infective therapy
  7. SODIUM CHLORIDE [Concomitant]
     Active Substance: SODIUM CHLORIDE
     Indication: Vehicle solution use
     Dosage: 100 ML, 3X/DAY
     Route: 041
     Dates: start: 20220623, end: 20220712

REACTIONS (5)
  - Loss of consciousness [Unknown]
  - Infection [Unknown]
  - Oxygen saturation decreased [Unknown]
  - Unresponsive to stimuli [Unknown]
  - Platelet count decreased [Recovering/Resolving]

NARRATIVE: CASE EVENT DATE: 20220628
